FAERS Safety Report 15547077 (Version 1)
Quarter: 2018Q4

REPORT INFORMATION
  Report Type: Spontaneous
  Country: ES (occurrence: ES)
  Receive Date: 20181024
  Receipt Date: 20181024
  Transmission Date: 20190205
  Serious: Yes (Other)
  Sender: FDA-Public Use
  Company Number: ES-TEVA-2018-ES-967980

PATIENT
  Age: 94 Year
  Sex: Female

DRUGS (8)
  1. LYRICA 75 MG CAPSULAS DURAS, 56 C?PSULAS [Concomitant]
     Dosage: 75 MILLIGRAM DAILY;
     Route: 048
  2. DEPRAX 100 MG COMPRIMIDOS RECUBIERTOS CON PELICULA EFG , 60 COMPRIMIDO [Concomitant]
     Dosage: 100 MILLIGRAM DAILY;
     Route: 048
  3. VENLAFAXINA (2664A) [Concomitant]
     Active Substance: VENLAFAXINE HYDROCHLORIDE
     Dosage: 150 MILLIGRAM DAILY;
     Route: 048
  4. ADIRO 100 MG COMPRIMIDOS GASTRORRESISTENTES EFG , 30 COMPRIMIDOS [Concomitant]
     Active Substance: ASPIRIN
     Dosage: 100 MILLIGRAM DAILY;
     Route: 048
  5. RANITIDINA (2A) [Concomitant]
     Active Substance: RANITIDINE
     Dosage: 300 MILLIGRAM DAILY;
     Route: 048
  6. QUETIAPINA (1136A) [Concomitant]
     Active Substance: QUETIAPINE
     Dosage: 50 MILLIGRAM DAILY;
     Route: 048
     Dates: start: 20180907
  7. FUROSEMIDA (1615A) [Concomitant]
     Active Substance: FUROSEMIDE
     Dosage: 60 MILLIGRAM DAILY;
     Route: 048
  8. RISPERIDONA FLAS RATIOPHARM 1 MG COMPRIMIDOS BUCODISPERSABLES EFG, 28 [Suspect]
     Active Substance: RISPERIDONE
     Dosage: 1 MILLIGRAM DAILY;
     Route: 048
     Dates: start: 20180903, end: 20180908

REACTIONS (2)
  - Erythema [Unknown]
  - Hallucination, visual [Recovered/Resolved]

NARRATIVE: CASE EVENT DATE: 20180903
